FAERS Safety Report 9680748 (Version 1)
Quarter: 2013Q4

REPORT INFORMATION
  Report Type: Report from Study
  Country: CL (occurrence: CL)
  Receive Date: 20131111
  Receipt Date: 20131111
  Transmission Date: 20140711
  Serious: Yes (Hospitalization)
  Sender: FDA-Public Use
  Company Number: PHHY2013CL126785

PATIENT
  Age: 28 Year
  Sex: Male

DRUGS (2)
  1. LEPONEX [Suspect]
     Indication: SCHIZOAFFECTIVE DISORDER
     Dosage: UNK
     Dates: start: 2013
  2. LITIO [Concomitant]
     Dosage: UNK
     Dates: start: 2013

REACTIONS (4)
  - Anxiety [Recovering/Resolving]
  - General physical health deterioration [Unknown]
  - Somnolence [Not Recovered/Not Resolved]
  - Disturbance in social behaviour [Unknown]
